FAERS Safety Report 20983050 (Version 1)
Quarter: 2022Q2

REPORT INFORMATION
  Report Type: Other
  Country: JP (occurrence: JP)
  Receive Date: 20220620
  Receipt Date: 20220620
  Transmission Date: 20220721
  Serious: Yes (Other)
  Sender: FDA-Public Use
  Company Number: JP-CHUGAI-2022022385

PATIENT
  Age: 80 Year
  Sex: Female
  Weight: 38.2 kg

DRUGS (3)
  1. POLATUZUMAB VEDOTIN [Suspect]
     Active Substance: POLATUZUMAB VEDOTIN
     Indication: Diffuse large B-cell lymphoma
     Dosage: MOST RECENT DOSE POLATUZUMAB VEDOTIN ON 25/OCT/2021.
     Route: 041
     Dates: start: 20210821
  2. BENDAMUSTINE HYDROCHLORIDE [Concomitant]
     Active Substance: BENDAMUSTINE HYDROCHLORIDE
     Indication: Diffuse large B-cell lymphoma
     Dosage: MOST RECENT  DOSE OF  BENDAMUSTINE HYDROCHLORIDE:16/NOV/2021
     Route: 041
     Dates: start: 20210821
  3. RITUXIMAB [Concomitant]
     Active Substance: RITUXIMAB
     Indication: Diffuse large B-cell lymphoma
     Dosage: MOST RECENT DOSE OF RITUXIMAB: 15/NOV/2021
     Route: 041
     Dates: start: 20210820

REACTIONS (2)
  - Neutrophil count decreased [Unknown]
  - Neuropathy peripheral [Recovering/Resolving]

NARRATIVE: CASE EVENT DATE: 20210906
